FAERS Safety Report 9780268 (Version 2)
Quarter: 2014Q1

REPORT INFORMATION
  Report Type: Report from Study
  Country: BE (occurrence: BE)
  Receive Date: 20131223
  Receipt Date: 20140116
  Transmission Date: 20141002
  Serious: Yes (Death, Hospitalization)
  Sender: FDA-Public Use
  Company Number: BE-CELGENEUS-013-21880-13122547

PATIENT
  Age: 86 Year
  Sex: Male

DRUGS (8)
  1. REVLIMID [Suspect]
     Indication: PRODUCT USED FOR UNKNOWN INDICATION
     Route: 048
     Dates: start: 20121015, end: 20121119
  2. OMEPRAZOLE [Concomitant]
     Indication: HERNIA
     Dosage: 20 MILLIGRAM
     Route: 048
     Dates: start: 2009
  3. STEOVIT D3 [Concomitant]
     Indication: PRODUCT USED FOR UNKNOWN INDICATION
     Dosage: 1CO
     Route: 048
     Dates: start: 2010
  4. PREVALON [Concomitant]
     Indication: NUTRITIONAL SUPPLEMENTATION
     Dosage: 1CO
     Route: 048
     Dates: start: 2002
  5. ASAFLOW [Concomitant]
     Indication: CARDIAC FAILURE
     Dosage: 80 MILLIGRAM
     Route: 048
     Dates: start: 201210
  6. CORUNO [Concomitant]
     Indication: CARDIAC FAILURE
     Dosage: 14 MILLIGRAM
     Route: 048
     Dates: start: 201210
  7. LASIX [Concomitant]
     Indication: CARDIAC FAILURE
     Route: 048
     Dates: start: 201210
  8. ALDACTONE [Concomitant]
     Indication: CARDIAC FAILURE
     Route: 048
     Dates: start: 201210

REACTIONS (1)
  - Death [Fatal]
